FAERS Safety Report 7733038-7 (Version None)
Quarter: 2011Q3

REPORT INFORMATION
  Report Type: 
  Country: None (occurrence: None)
  Receive Date: 20110907
  Receipt Date: 20110826
  Transmission Date: 20111222
  Serious: Yes (Hospitalization, Other)
  Sender: FDA-Public Use
  Company Number: US-JNJFOC-20110901049

PATIENT
  Sex: Female
  Weight: 63.5 kg

DRUGS (2)
  1. DOXORUBICIN HCL [Suspect]
     Route: 042
  2. DOXORUBICIN HCL [Suspect]
     Indication: OVARIAN CANCER
     Route: 042
     Dates: start: 20110601

REACTIONS (10)
  - INTESTINAL OBSTRUCTION [None]
  - MEMORY IMPAIRMENT [None]
  - PAIN [None]
  - PULMONARY OEDEMA [None]
  - VOMITING [None]
  - MALAISE [None]
  - ADVERSE EVENT [None]
  - DYSPNOEA [None]
  - DRUG DOSE OMISSION [None]
  - ASTHENIA [None]
